FAERS Safety Report 10056183 (Version 1)
Quarter: 2014Q2

REPORT INFORMATION
  Report Type: Spontaneous
  Country: FR (occurrence: None)
  Receive Date: 20140401
  Receipt Date: 20140401
  Transmission Date: 20141212
  Serious: Yes (Other)
  Sender: FDA-Public Use
  Company Number: 2014P1002366

PATIENT
  Age: 22 Year
  Sex: Female

DRUGS (1)
  1. PYRIMETHAMINE [Suspect]
     Dosage: X1; TDER
     Route: 062

REACTIONS (2)
  - Drug reaction with eosinophilia and systemic symptoms [None]
  - Skin test positive [None]
